FAERS Safety Report 16098076 (Version 2)
Quarter: 2019Q3

REPORT INFORMATION
  Report Type: Other
  Country: AT (occurrence: AT)
  Receive Date: 20190320
  Receipt Date: 20190709
  Transmission Date: 20191004
  Serious: Yes (Hospitalization)
  Sender: FDA-Public Use
  Company Number: AT-CELLTRION INC.-2018AT022920

PATIENT

DRUGS (31)
  1. TRASTUZUMAB (UNKNOWN) [Suspect]
     Active Substance: TRASTUZUMAB
     Dosage: 288 MG, 3 WEEK
     Route: 042
     Dates: start: 20180831, end: 20180831
  2. PERTUZUMAB. [Suspect]
     Active Substance: PERTUZUMAB
     Indication: HER-2 POSITIVE BREAST CANCER
     Dosage: 840 MG, EVERY 3 WEEKS MOST RECENT DOSE PRIOR TO THE EVENT: 31/AUG/2018
     Route: 042
     Dates: start: 20180810
  3. TEMESTA [LORAZEPAM] [Concomitant]
     Active Substance: LORAZEPAM
     Dosage: UNK
     Route: 065
  4. ROZEX [METRONIDAZOLE] [Concomitant]
     Indication: DERMATITIS
     Dosage: UNK
     Route: 065
     Dates: start: 20180921, end: 20181005
  5. MOLAXOLE [Concomitant]
     Active Substance: POLYETHYLENE GLYCOL 3350\POTASSIUM CHLORIDE\SODIUM BICARBONATE\SODIUM CHLORIDE
     Indication: CONSTIPATION
     Dosage: UNK
     Route: 065
     Dates: start: 20180831, end: 20180915
  6. KYTRIL [Concomitant]
     Active Substance: GRANISETRON HYDROCHLORIDE
     Dosage: UNK
     Route: 065
     Dates: start: 20180810, end: 20180914
  7. CLAVERSAL [Concomitant]
     Active Substance: MESALAMINE
     Dosage: UNK
     Route: 065
  8. ANTIFLAT [Concomitant]
     Dosage: UNK
     Dates: start: 20181126
  9. FEMARA [Suspect]
     Active Substance: LETROZOLE
     Indication: BREAST CANCER
     Dosage: 2.5 MG, 1 DAY
     Route: 048
     Dates: start: 20181029
  10. ABRAXANE [Suspect]
     Active Substance: PACLITAXEL
     Indication: BREAST CANCER
     Dosage: 142.11 MG EVERY WEEK
     Route: 042
     Dates: start: 20180928
  11. AMLODIBENE [Concomitant]
     Active Substance: AMLODIPINE BESYLATE
     Indication: HYPERTENSION
     Dosage: UNK
     Route: 065
     Dates: start: 20180810
  12. KYTRIL [Concomitant]
     Active Substance: GRANISETRON HYDROCHLORIDE
     Dosage: UNK
     Route: 065
     Dates: start: 20180928
  13. TRASTUZUMAB (UNKNOWN) [Suspect]
     Active Substance: TRASTUZUMAB
     Indication: HER-2 POSITIVE BREAST CANCER
     Dosage: 384 MG, EVERY 3 WEEKS
     Route: 042
     Dates: start: 20180810, end: 20180810
  14. ZOFRAN [Concomitant]
     Active Substance: ONDANSETRON HYDROCHLORIDE
     Dosage: UNK
     Route: 065
     Dates: start: 20180907
  15. TRASTUZUMAB (UNKNOWN) [Suspect]
     Active Substance: TRASTUZUMAB
     Dosage: 384 UNK
     Route: 042
     Dates: start: 20181109, end: 20181109
  16. PERTUZUMAB. [Suspect]
     Active Substance: PERTUZUMAB
     Dosage: 420 MG EVERY 3 WEEKS
     Route: 042
     Dates: start: 20180831
  17. ULSAL [Concomitant]
     Active Substance: RANITIDINE HYDROCHLORIDE
     Dosage: UNK
     Route: 065
     Dates: start: 20180810, end: 20180914
  18. XGEVA [Concomitant]
     Active Substance: DENOSUMAB
     Dosage: UNK
     Route: 065
     Dates: start: 20180817
  19. ENTEROBENE [Concomitant]
     Indication: DIARRHOEA
     Dosage: UNK
     Dates: start: 20181012, end: 20181117
  20. CIPROXIN [CIPROFLOXACIN] [Concomitant]
     Indication: GASTROENTERITIS RADIATION
     Dosage: UNK
     Route: 065
     Dates: start: 20181118
  21. PARKEMED [Concomitant]
     Active Substance: MEFENAMIC ACID
     Indication: ARTHRALGIA
     Dosage: UNK
     Route: 065
     Dates: start: 20180914
  22. TRITTICO [Concomitant]
     Active Substance: TRAZODONE HYDROCHLORIDE
     Dosage: DRUG REPORTED AS TRITTICO RET.
     Route: 065
  23. ZOFRAN [Concomitant]
     Active Substance: ONDANSETRON HYDROCHLORIDE
     Indication: NAUSEA
     Dosage: UNK
     Route: 065
     Dates: start: 20180817, end: 20180907
  24. OLEOVIT [DEXPANTHENOL;RETINOL] [Concomitant]
     Dosage: UNK
     Route: 065
     Dates: start: 20180831
  25. PARKEMED [Concomitant]
     Active Substance: MEFENAMIC ACID
     Dosage: UNK
     Route: 065
     Dates: start: 20181019
  26. DEXABENE [Concomitant]
     Dosage: UNK
     Route: 065
     Dates: start: 20180810, end: 20180914
  27. PASPERTIN [METOCLOPRAMIDE HYDROCHLORIDE] [Concomitant]
     Active Substance: METOCLOPRAMIDE HYDROCHLORIDE
     Indication: NAUSEA
     Dosage: UNK
     Route: 065
     Dates: start: 20180801, end: 20180807
  28. ABRAXANE [Suspect]
     Active Substance: PACLITAXEL
     Dosage: 142.11 MG, 1 WEEK
     Route: 042
     Dates: start: 20181005
  29. ABRAXANE [Suspect]
     Active Substance: PACLITAXEL
     Dosage: 142.11 MG, 1 WEEK
     Route: 042
     Dates: start: 20181019
  30. FENAKUT [Concomitant]
     Dosage: UNK
     Route: 065
     Dates: start: 20180810, end: 20180914
  31. CALCIDURAN [Concomitant]
     Active Substance: ASCORBIC ACID\CALCIUM PHOSPHATE\CHOLECALCIFEROL\CITRIC ACID MONOHYDRATE
     Indication: GASTROENTERITIS RADIATION
     Dosage: UNK
     Dates: start: 20181117, end: 20181118

REACTIONS (12)
  - Epistaxis [Recovered/Resolved]
  - Hypertension [Unknown]
  - Nausea [Recovered/Resolved]
  - Mucosal inflammation [Recovered/Resolved]
  - Conjunctivitis [Recovered/Resolved]
  - Gastroenteritis radiation [Recovered/Resolved]
  - Dermatitis [Recovered/Resolved]
  - Diarrhoea [Not Recovered/Not Resolved]
  - Abdominal pain upper [Not Recovered/Not Resolved]
  - Arthralgia [Recovering/Resolving]
  - Blepharitis [Recovered/Resolved]
  - Constipation [Recovered/Resolved]

NARRATIVE: CASE EVENT DATE: 20180810
